FAERS Safety Report 6011529-7 (Version None)
Quarter: 2008Q4

REPORT INFORMATION
  Report Type: 
  Country: None (occurrence: None)
  Receive Date: 20081218
  Receipt Date: 20080903
  Transmission Date: 20090506
  Serious: No
  Sender: FDA-Public Use
  Company Number: US-ASTRAZENECA-2008UW18244

PATIENT
  Age: 57 Year
  Sex: Female

DRUGS (7)
  1. CRESTOR [Suspect]
     Indication: HYPERCHOLESTEROLAEMIA
     Dosage: TREATMENT ON AND OFF
     Route: 048
     Dates: start: 20030101
  2. ZETIA [Concomitant]
  3. TRICOR [Concomitant]
  4. PLAVIX [Concomitant]
  5. DEPAKOTE [Concomitant]
  6. TRAZODONE HCL [Concomitant]
  7. BUSPAR [Concomitant]

REACTIONS (2)
  - ARTHRITIS [None]
  - FATIGUE [None]
